FAERS Safety Report 8682497 (Version 4)
Quarter: 2013Q1

REPORT INFORMATION
  Report Type: Spontaneous
  Country: US (occurrence: US)
  Receive Date: 20120725
  Receipt Date: 20130327
  Transmission Date: 20140127
  Serious: Yes (Death, Hospitalization, Other)
  Sender: FDA-Public Use
  Company Number: US-ELI_LILLY_AND_COMPANY-US201207005000

PATIENT
  Age: 82 None
  Sex: Female
  Weight: 54.42 kg

DRUGS (20)
  1. FORTEO [Suspect]
     Indication: OSTEOPOROSIS
     Dosage: UNK, QD
     Dates: start: 201110, end: 201207
  2. CRESTOR [Concomitant]
  3. NPH INSULIN [Concomitant]
     Dosage: UNK
     Dates: end: 201207
  4. PREDNISONE [Concomitant]
  5. NEXIUM [Concomitant]
  6. PRADAXA [Concomitant]
  7. ALBUTEROL [Concomitant]
  8. TAZTIA XT [Concomitant]
  9. MESTINON [Concomitant]
  10. OSCAL [Concomitant]
  11. FERROUS SULFATE [Concomitant]
  12. FIBERCON [Concomitant]
  13. VITAMIN D [Concomitant]
     Dosage: 20 UG, QD
     Route: 058
     Dates: start: 201110
  14. NOVOLOG [Concomitant]
  15. LEVOTHYROXINE [Concomitant]
  16. ADVAIR [Concomitant]
  17. PANTOPRAZOLE [Concomitant]
  18. ACIDOPHILUS [Concomitant]
  19. CHOLESTYRAMINE [Concomitant]
  20. FLORASTOR [Concomitant]

REACTIONS (4)
  - Osteomyelitis [Fatal]
  - Paralysis [Recovered/Resolved]
  - Myasthenia gravis [Recovered/Resolved]
  - Decubitus ulcer [Unknown]
